FAERS Safety Report 19482962 (Version 2)
Quarter: 2021Q3

REPORT INFORMATION
  Report Type: Spontaneous
  Country: JP (occurrence: JP)
  Receive Date: 20210701
  Receipt Date: 20210713
  Transmission Date: 20211014
  Serious: Yes (Death, Other)
  Sender: FDA-Public Use
  Company Number: JP-AMGEN-JPNSP2021099685

PATIENT
  Age: 68 Year
  Sex: Male
  Weight: 57.5 kg

DRUGS (6)
  1. MIRCERA [Concomitant]
     Active Substance: METHOXY POLYETHYLENE GLYCOL-EPOETIN BETA
     Dosage: 12.5 UG, Q4W
     Route: 065
     Dates: start: 20210101
  2. ORKEDIA [Concomitant]
     Active Substance: EVOCALCET
     Dosage: 1 MG, EVERYDAY
     Route: 048
     Dates: start: 20180912
  3. P?TOL [SUCROFERRIC OXYHYDROXIDE] [Concomitant]
     Active Substance: SUCROFERRIC OXYHYDROXIDE
     Dosage: 500 MILLIGRAM, QD
     Route: 065
  4. KIKLIN [Concomitant]
     Active Substance: BIXALOMER
     Dosage: 1000 MG, EVERYDAY
     Route: 065
  5. PARSABIV [Suspect]
     Active Substance: ETELCALCETIDE HYDROCHLORIDE
     Indication: HYPERPARATHYROIDISM SECONDARY
     Dosage: UNK
     Route: 041
  6. ROCALTROL [Concomitant]
     Active Substance: CALCITRIOL
     Dosage: 0.5 UG, Q56H
     Route: 042

REACTIONS (1)
  - Sudden death [Fatal]

NARRATIVE: CASE EVENT DATE: 20210621
